FAERS Safety Report 6589570-5 (Version None)
Quarter: 2010Q1

REPORT INFORMATION
  Report Type: 
  Country: None (occurrence: None)
  Receive Date: 20100212
  Receipt Date: 20100127
  Transmission Date: 20100710
  Serious: Yes (Death, Life-Threatening)
  Sender: FDA-Public Use
  Company Number: 09GB001147

PATIENT
  Age: 68 Year
  Sex: Male
  Weight: 90 kg

DRUGS (10)
  1. PAROXETINE HCL [Suspect]
  2. ACETAMINOPHEN [Suspect]
  3. CANDESARTAN CILEXETIL [Concomitant]
  4. CETIRIZINE HCL [Concomitant]
  5. DIAZEPAM [Concomitant]
  6. MOMETASONE FUROATE [Concomitant]
  7. OMEPRAZOLE [Concomitant]
  8. SIMVASTATIN [Concomitant]
  9. VENLAFAXINE HCL [Concomitant]
  10. ZOPLICONE       (ZOPICLONE) TABLET [Concomitant]

REACTIONS (2)
  - MULTIPLE DRUG OVERDOSE INTENTIONAL [None]
  - PLATELET COUNT DECREASED [None]
